FAERS Safety Report 6050970-3 (Version None)
Quarter: 2009Q1

REPORT INFORMATION
  Report Type: 
  Country: None (occurrence: None)
  Receive Date: 20090121
  Receipt Date: 20090105
  Transmission Date: 20090719
  Serious: Yes (Disabling, Other)
  Sender: FDA-Public Use
  Company Number: 2009S1000215

PATIENT
  Age: 49 Year
  Sex: Male

DRUGS (2)
  1. PAROXETINE HCL [Suspect]
     Indication: ANXIETY
     Dosage: 20 MG; ORAL
     Route: 048
     Dates: start: 20071128, end: 20081201
  2. FUROSEMIDE [Concomitant]

REACTIONS (3)
  - DYSPNOEA [None]
  - FLUID RETENTION [None]
  - GENERALISED OEDEMA [None]
